FAERS Safety Report 7452354-X (Version None)
Quarter: 2011Q2

REPORT INFORMATION
  Report Type: 
  Country: None (occurrence: None)
  Receive Date: 20110425
  Receipt Date: 20110413
  Transmission Date: 20111010
  Serious: Yes (Other)
  Sender: FDA-Public Use
  Company Number: 2011MA003953

PATIENT
  Age: 30 Year
  Sex: Male

DRUGS (1)
  1. FINASTERIDE [Suspect]
     Indication: ALOPECIA
     Dosage: 1.25 MG;QD;PO
     Route: 048
     Dates: end: 20110301

REACTIONS (4)
  - ERECTILE DYSFUNCTION [None]
  - WEIGHT INCREASED [None]
  - LIBIDO DECREASED [None]
  - EJACULATION FAILURE [None]
